FAERS Safety Report 8849371 (Version 1)
Quarter: 2012Q4

REPORT INFORMATION
  Report Type: 
  Country: US (occurrence: None)
  Receive Date: 20121018
  Receipt Date: 20121018
  Transmission Date: 20130627
  Serious: Yes (Hospitalization)
  Sender: FDA-Public Use
  Company Number: None

PATIENT
  Sex: Male
  Weight: 62.2 kg

DRUGS (1)
  1. CETUXIMAB [Suspect]
     Dosage: 10/3/2012 was week 6 of 8 weeks scheduled therapy.
     Dates: start: 20121003

REACTIONS (3)
  - Nausea [None]
  - Vomiting [None]
  - Pain [None]
